FAERS Safety Report 12848028 (Version 1)
Quarter: 2016Q4

REPORT INFORMATION
  Report Type: Spontaneous
  Country: US (occurrence: US)
  Receive Date: 20161014
  Receipt Date: 20161014
  Transmission Date: 20170207
  Serious: No
  Sender: FDA-Public Use
  Company Number: US-JNJFOC-20160928091

PATIENT
  Age: 12 Month
  Sex: Male
  Weight: 9.98 kg

DRUGS (1)
  1. CHILDRENS TYLENOL [Suspect]
     Active Substance: ACETAMINOPHEN
     Indication: PAIN
     Route: 048
     Dates: start: 20160927, end: 20160927

REACTIONS (2)
  - Crying [Unknown]
  - Expired product administered [Unknown]

NARRATIVE: CASE EVENT DATE: 20160927
